FAERS Safety Report 8561317-2 (Version None)
Quarter: 2012Q3

REPORT INFORMATION
  Report Type: 
  Country: None (occurrence: None)
  Receive Date: 20120802
  Receipt Date: 20120725
  Transmission Date: 20120928
  Serious: No
  Sender: FDA-Public Use
  Company Number: NL-MEDIMMUNE-MEDI-0015006

PATIENT
  Age: 8 Month
  Sex: Male
  Weight: 7.4 kg

DRUGS (5)
  1. ALBUTEROL SULATE [Concomitant]
     Dosage: 2 PUFF, 4 IN 1 DAY
  2. SYNAGIS [Suspect]
     Route: 030
     Dates: start: 20120119, end: 20120119
  3. SYNAGIS [Suspect]
     Route: 030
     Dates: end: 20120423
  4. SYNAGIS [Suspect]
     Indication: PREMATURE BABY
     Route: 030
     Dates: start: 20111027, end: 20111027
  5. SYNAGIS [Suspect]
     Route: 030
     Dates: start: 20120216, end: 20120216

REACTIONS (7)
  - UPPER RESPIRATORY TRACT INFECTION [None]
  - NASOPHARYNGITIS [None]
  - COUGH [None]
  - INSOMNIA [None]
  - HYPOPHAGIA [None]
  - PYREXIA [None]
  - PRODUCTIVE COUGH [None]
